FAERS Safety Report 8898908 (Version 1)
Quarter: 2012Q4

REPORT INFORMATION
  Report Type: 
  Country: US (occurrence: US)
  Receive Date: 20121108
  Receipt Date: 20121108
  Transmission Date: 20130627
  Serious: No
  Sender: FDA-Public Use
  Company Number: US-AMGEN-USASP2012031336

PATIENT
  Age: 62 Year
  Sex: Male

DRUGS (11)
  1. ENBREL [Suspect]
     Indication: PSORIATIC ARTHROPATHY
     Dosage: 50 mg, qwk
     Route: 058
     Dates: start: 201110
  2. ENBREL [Suspect]
     Indication: PSORIASIS
  3. ANDROGEL [Concomitant]
     Dosage: 5 g, qd
  4. LISINOPRIL [Concomitant]
     Dosage: 40 mg, qd
     Route: 048
  5. NORVASC [Concomitant]
     Dosage: 10 mg, qd
     Route: 048
  6. PRILOSEC                           /00661201/ [Concomitant]
     Dosage: 20 mg, qd
     Route: 048
  7. CARVEDILOL [Concomitant]
     Dosage: 6.25 mg, bid
     Route: 048
  8. AMBIEN [Concomitant]
     Dosage: 10 mg, prn
     Route: 048
  9. DOVONEX [Concomitant]
     Route: 061
  10. VIAGRA [Concomitant]
     Dosage: 100 mg, prn
  11. LIDODERM [Concomitant]
     Dosage: UNK UNK, qd

REACTIONS (3)
  - Feeling abnormal [Unknown]
  - Injection site pain [Not Recovered/Not Resolved]
  - Injection site reaction [Not Recovered/Not Resolved]
